FAERS Safety Report 17160912 (Version 1)
Quarter: 2019Q4

REPORT INFORMATION
  Report Type: Spontaneous
  Country: DE (occurrence: DE)
  Receive Date: 20191216
  Receipt Date: 20191216
  Transmission Date: 20200122
  Serious: Yes (Hospitalization)
  Sender: FDA-Public Use
  Company Number: DE-SA-2019SA340621

PATIENT
  Age: 42 Year
  Sex: Female
  Weight: 84 kg

DRUGS (3)
  1. CANDESARTAN. [Concomitant]
     Active Substance: CANDESARTAN
     Indication: BLOOD PRESSURE MEASUREMENT
     Dosage: 8MG, 4MG
     Route: 048
  2. AZATHIOPRIN [Concomitant]
     Active Substance: AZATHIOPRINE
     Indication: MYASTHENIA GRAVIS
     Dosage: 175 MG, 25MG
     Route: 048
  3. MYTELASE [Suspect]
     Active Substance: AMBENONIUM CHLORIDE
     Indication: MYASTHENIA GRAVIS
     Dosage: 5 MG, QID (PREVIOUSLY 3X5 MG WERE TAKEN)
     Route: 048
     Dates: start: 20190901

REACTIONS (6)
  - Diplopia [Unknown]
  - Muscular weakness [Unknown]
  - Dizziness [Unknown]
  - Overdose [Unknown]
  - Speech disorder [Unknown]
  - Dysphagia [Unknown]

NARRATIVE: CASE EVENT DATE: 20190926
